FAERS Safety Report 8451548-4 (Version None)
Quarter: 2012Q2

REPORT INFORMATION
  Report Type: 
  Country: None (occurrence: None)
  Receive Date: 20120620
  Receipt Date: 20120307
  Transmission Date: 20120825
  Serious: No
  Sender: FDA-Public Use
  Company Number: US-VERTEX PHARMACEUTICALS INC.-AE-2012-003302

PATIENT
  Sex: Female
  Weight: 84.444 kg

DRUGS (5)
  1. PEGASYS [Concomitant]
     Indication: HEPATITIS C
     Route: 058
     Dates: start: 20120114
  2. RIBAPACK [Concomitant]
     Indication: HEPATITIS C
     Route: 048
     Dates: start: 20120114
  3. ATENOLOL [Concomitant]
     Indication: HYPERTENSION
  4. FLUID PILL [Concomitant]
     Indication: HYPERTENSION
  5. INCIVEK [Suspect]
     Indication: HEPATITIS C
     Route: 048
     Dates: start: 20120114

REACTIONS (3)
  - RASH ERYTHEMATOUS [None]
  - PRURITUS GENERALISED [None]
  - URTICARIA [None]
